FAERS Safety Report 19484350 (Version 2)
Quarter: 2021Q3

REPORT INFORMATION
  Report Type: Spontaneous
  Country: JP (occurrence: JP)
  Receive Date: 20210702
  Receipt Date: 20210812
  Transmission Date: 20211014
  Serious: Yes (Other)
  Sender: FDA-Public Use
  Company Number: JP-UCBSA-2021031686

PATIENT
  Age: 74 Year
  Sex: Female
  Weight: 38.5 kg

DRUGS (3)
  1. E KEPPRA [Suspect]
     Active Substance: LEVETIRACETAM
     Indication: FOCAL DYSCOGNITIVE SEIZURES
     Dosage: 1000 MG A DAY
     Route: 041
     Dates: start: 20190914, end: 20190918
  2. E KEPPRA [Suspect]
     Active Substance: LEVETIRACETAM
     Indication: FOCAL DYSCOGNITIVE SEIZURES
     Dosage: 1000 MG A DAY
     Route: 048
     Dates: start: 20190604, end: 20190613
  3. TEGRETOL [Concomitant]
     Active Substance: CARBAMAZEPINE
     Indication: FOCAL DYSCOGNITIVE SEIZURES
     Dosage: UNK
     Route: 048
     Dates: start: 20190613, end: 20190914

REACTIONS (3)
  - Epilepsy [Unknown]
  - Dysphagia [Unknown]
  - Delirium [Unknown]

NARRATIVE: CASE EVENT DATE: 2019
